FAERS Safety Report 4440295-1 (Version None)
Quarter: 2004Q3

REPORT INFORMATION
  Report Type: 
  Country: None (occurrence: None)
  Receive Date: 20040831
  Receipt Date: 20040527
  Transmission Date: 20050211
  Serious: No
  Sender: FDA-Public Use
  Company Number: 702017

PATIENT
  Age: 25 Year
  Sex: Female
  Weight: 77.1115 kg

DRUGS (1)
  1. AMEVIVE [Suspect]
     Indication: PSORIASIS
     Dosage: 15 MG QW IM
     Route: 030
     Dates: start: 20040528

REACTIONS (4)
  - ABDOMINAL PAIN UPPER [None]
  - CHILLS [None]
  - DIARRHOEA [None]
  - NAUSEA [None]
